FAERS Safety Report 8837428 (Version 1)
Quarter: 2012Q4

REPORT INFORMATION
  Report Type: Spontaneous
  Country: US (occurrence: None)
  Receive Date: 20121011
  Receipt Date: 20121011
  Transmission Date: 20130627
  Serious: Yes (Hospitalization, Disabling)
  Sender: FDA-Public Use
  Company Number: None

PATIENT
  Age: 6 Year
  Sex: Female
  Weight: 23 kg

DRUGS (1)
  1. GRISEOFULVIN [Suspect]
     Dates: start: 20120815, end: 20120915

REACTIONS (3)
  - Inflammatory bowel disease [None]
  - Colitis ulcerative [None]
  - Crohn^s disease [None]
